FAERS Safety Report 17434897 (Version 1)
Quarter: 2020Q1

REPORT INFORMATION
  Report Type: Spontaneous
  Country: US (occurrence: US)
  Receive Date: 20200218
  Receipt Date: 20200218
  Transmission Date: 20200409
  Serious: Yes (Other)
  Sender: FDA-Public Use
  Company Number: None

PATIENT
  Age: 64 Year
  Sex: Female
  Weight: 94.5 kg

DRUGS (14)
  1. SYNTHROID [Concomitant]
     Active Substance: LEVOTHYROXINE SODIUM
  2. ALEVE [Concomitant]
     Active Substance: NAPROXEN SODIUM
  3. AIMOVIG [Suspect]
     Active Substance: ERENUMAB-AOOE
     Indication: MIGRAINE
     Dosage: ?          QUANTITY:1 INJECTION(S);OTHER FREQUENCY:MONTHLY;?
     Route: 058
     Dates: start: 20181015, end: 20191015
  4. ZOMIG [Concomitant]
     Active Substance: ZOLMITRIPTAN
  5. TIMOLOL. [Concomitant]
     Active Substance: TIMOLOL
  6. ALPHAGAN P [Concomitant]
     Active Substance: BRIMONIDINE TARTRATE
  7. ZOFRAN [Concomitant]
     Active Substance: ONDANSETRON HYDROCHLORIDE
  8. CPAP [Concomitant]
     Active Substance: DEVICE
  9. GINGER. [Concomitant]
     Active Substance: GINGER
  10. MIGRATONE [Concomitant]
  11. PROMETHAZINE [Concomitant]
     Active Substance: PROMETHAZINE HYDROCHLORIDE
  12. LANTANAPROST [Concomitant]
  13. TIZANADINE [Concomitant]
     Active Substance: TIZANIDINE
  14. CALCIUM [Concomitant]
     Active Substance: CALCIUM

REACTIONS (3)
  - Depression [None]
  - Mood swings [None]
  - Suicidal ideation [None]

NARRATIVE: CASE EVENT DATE: 20191017
